FAERS Safety Report 8838164 (Version 2)
Quarter: 2012Q4

REPORT INFORMATION
  Report Type: Report from Study
  Country: US (occurrence: US)
  Receive Date: 20121012
  Receipt Date: 20121227
  Transmission Date: 20130627
  Serious: Yes (Death)
  Sender: FDA-Public Use
  Company Number: US-ABBOTT-12P-163-0993635-00

PATIENT
  Age: 81 Year
  Sex: Male
  Weight: 74 kg

DRUGS (17)
  1. HUMIRA [Suspect]
     Indication: PSORIASIS
     Route: 058
     Dates: start: 20120420
  2. METHOTREXATE [Concomitant]
     Indication: PSORIASIS
     Dosage: 1 out of 7 days a week
     Dates: start: 20120628
  3. TIKOSYN [Concomitant]
     Indication: PRODUCT USED FOR UNKNOWN INDICATION
     Dates: start: 2001
  4. MAGNESIUM OXIDE [Concomitant]
     Indication: PRODUCT USED FOR UNKNOWN INDICATION
     Dates: start: 2001
  5. ASPIRIN [Concomitant]
     Indication: ANTICOAGULANT THERAPY
     Dates: start: 201203
  6. PERCOCET [Concomitant]
     Indication: PAIN MANAGEMENT
     Dosage: 5/325 mg
     Dates: start: 1993
  7. NEXIUM [Concomitant]
     Indication: PRODUCT USED FOR UNKNOWN INDICATION
     Dates: start: 2006
  8. LORATADINE [Concomitant]
     Indication: PRODUCT USED FOR UNKNOWN INDICATION
     Dates: start: 2010
  9. ANAGRELIDE [Concomitant]
     Indication: ESSENTIAL THROMBOCYTHAEMIA
     Dates: start: 2010
  10. LASIX [Concomitant]
     Indication: OEDEMA
     Dates: start: 2012
  11. FLOMAX [Concomitant]
     Indication: PRODUCT USED FOR UNKNOWN INDICATION
     Dates: start: 2006
  12. AMOXICILLIN [Concomitant]
     Indication: ANTIBIOTIC PROPHYLAXIS
     Dosage: 4 tabs one hour prior to dental appt.
     Route: 048
     Dates: start: 1981
  13. MULTIVITAMINS [Concomitant]
     Indication: VITAMIN SUPPLEMENTATION
     Dates: start: 2006
  14. MIRALAX [Concomitant]
     Indication: CONSTIPATION PROPHYLAXIS
     Dates: start: 1993
  15. VITAMIN D3 [Concomitant]
     Indication: SUPPLEMENTATION THERAPY
     Dates: start: 2011
  16. DOCUSATE SODIUM [Concomitant]
     Indication: CONSTIPATION PROPHYLAXIS
     Dates: start: 1993
  17. FOLIC ACID [Concomitant]
     Indication: PSORIASIS
     Dates: start: 20120628

REACTIONS (1)
  - Sudden cardiac death [Fatal]
